FAERS Safety Report 8507613 (Version 4)
Quarter: 2013Q2

REPORT INFORMATION
  Report Type: Spontaneous
  Country: US (occurrence: US)
  Receive Date: 20120412
  Receipt Date: 20130410
  Transmission Date: 20140414
  Serious: No
  Sender: FDA-Public Use
  Company Number: US-ASTRAZENECA-2011SE42214

PATIENT
  Age: 47 Year
  Sex: Female

DRUGS (4)
  1. NEXIUM [Suspect]
     Route: 048
  2. OMEPRAZOLE [Suspect]
     Indication: GASTROOESOPHAGEAL REFLUX DISEASE
     Route: 048
  3. OTHER MEDICATIONS [Suspect]
     Route: 065
  4. LEDIDINE [Concomitant]

REACTIONS (15)
  - Gastrooesophageal reflux disease [Unknown]
  - Pain [Unknown]
  - Adverse event [Unknown]
  - Chest pain [Unknown]
  - Ear discomfort [Unknown]
  - Ear pain [Unknown]
  - Drug dependence [Unknown]
  - Feeling abnormal [Unknown]
  - Retching [Unknown]
  - Malaise [Unknown]
  - Vomiting [Unknown]
  - Malaise [Unknown]
  - Insomnia [Unknown]
  - Drug dose omission [Unknown]
  - Drug ineffective [Unknown]
